FAERS Safety Report 9158630 (Version 1)
Quarter: 2013Q1

REPORT INFORMATION
  Report Type: Report from Study
  Country: JP (occurrence: JP)
  Receive Date: 20130312
  Receipt Date: 20130312
  Transmission Date: 20140127
  Serious: Yes (Death, Hospitalization)
  Sender: FDA-Public Use
  Company Number: JP-ROCHE-1165764

PATIENT
  Age: 64 Year
  Sex: Male
  Weight: 63.2 kg

DRUGS (5)
  1. TOCILIZUMAB [Suspect]
     Indication: RHEUMATOID ARTHRITIS
     Route: 041
     Dates: start: 20090630, end: 20110614
  2. HYPEN [Concomitant]
     Indication: RHEUMATOID ARTHRITIS
     Route: 048
  3. ULCERLMIN [Concomitant]
     Indication: GASTRITIS PROPHYLAXIS
     Route: 048
  4. METHYCOBAL [Concomitant]
     Indication: NEUROPATHY PERIPHERAL
     Route: 048
  5. ONEALFA [Concomitant]
     Indication: OSTEOPOROSIS PROPHYLAXIS
     Route: 048

REACTIONS (11)
  - Oropharyngeal cancer [Fatal]
  - Oesophagitis [Unknown]
  - Gastroenteritis [Unknown]
  - Cachexia [Fatal]
  - Dysphagia [Fatal]
  - Inappropriate antidiuretic hormone secretion [Fatal]
  - Pneumonia aspiration [Fatal]
  - Melaena [Fatal]
  - Shock haemorrhagic [Fatal]
  - Sepsis [Fatal]
  - Disseminated intravascular coagulation [Fatal]
